FAERS Safety Report 4611449-6 (Version None)
Quarter: 2005Q1

REPORT INFORMATION
  Report Type: 
  Country: None (occurrence: None)
  Receive Date: 20050317
  Receipt Date: 20050307
  Transmission Date: 20050727
  Serious: Yes (Other)
  Sender: FDA-Public Use
  Company Number: CA-JNJFOC-20041201625

PATIENT
  Sex: Female

DRUGS (12)
  1. REMICADE [Suspect]
     Indication: RHEUMATOID ARTHRITIS
     Route: 042
  2. METHOTREXATE [Concomitant]
     Dosage: 8 TAB/WEEKLY
  3. METHOTREXATE [Concomitant]
     Indication: RHEUMATOID ARTHRITIS
  4. LEUCOVORIN [Concomitant]
  5. ALTACE [Concomitant]
     Indication: HYPERTENSION
  6. LIPITOR [Concomitant]
  7. PREDNISONE [Concomitant]
  8. LOSEC [Concomitant]
     Indication: DYSPEPSIA
  9. GLUCONORM [Concomitant]
     Dosage: 3 TAB
  10. METFORMIN HCL [Concomitant]
  11. ORUDIS [Concomitant]
     Indication: RHEUMATOID ARTHRITIS
  12. CALCIUM GLUCONATE [Concomitant]

REACTIONS (2)
  - HEPATIC NECROSIS [None]
  - HEPATIC STEATOSIS [None]
